FAERS Safety Report 10021669 (Version 2)
Quarter: 2014Q2

REPORT INFORMATION
  Report Type: Report from Study
  Country: US (occurrence: US)
  Receive Date: 20140319
  Receipt Date: 20140408
  Transmission Date: 20141212
  Serious: Yes (Other)
  Sender: FDA-Public Use
  Company Number: US-JNJFOC-20140309001

PATIENT
  Sex: Female
  Weight: 58.97 kg

DRUGS (5)
  1. REMICADE [Suspect]
     Indication: CROHN^S DISEASE
     Route: 042
     Dates: start: 20140226
  2. REMICADE [Suspect]
     Indication: CROHN^S DISEASE
     Dosage: 3 VIALS
     Route: 042
     Dates: start: 2011
  3. SPRINTEC [Concomitant]
     Indication: CONTRACEPTION
     Route: 065
  4. VITAMIN [Concomitant]
     Route: 065
  5. PROBIOTICS [Concomitant]
     Route: 065

REACTIONS (5)
  - Basal cell carcinoma [Recovered/Resolved]
  - Arthralgia [Not Recovered/Not Resolved]
  - Muscle strain [Unknown]
  - Antinuclear antibody increased [Not Recovered/Not Resolved]
  - Double stranded DNA antibody [Not Recovered/Not Resolved]
